FAERS Safety Report 17229012 (Version 1)
Quarter: 2020Q1

REPORT INFORMATION
  Report Type: Other
  Country: GB (occurrence: GB)
  Receive Date: 20200103
  Receipt Date: 20200103
  Transmission Date: 20200409
  Serious: Yes (Congenital Anomaly, Other)
  Sender: FDA-Public Use
  Company Number: GB-MACLEODS PHARMACEUTICALS US LTD-MAC2019024401

PATIENT

DRUGS (3)
  1. TENOFOVIR [Suspect]
     Active Substance: TENOFOVIR
     Indication: PRODUCT USED FOR UNKNOWN INDICATION
     Dosage: 1 DOSAGE FORM 1 COURSE
     Route: 064
  2. VIRACEPT [Suspect]
     Active Substance: NELFINAVIR MESYLATE
     Indication: PRODUCT USED FOR UNKNOWN INDICATION
     Dosage: 1 DOSAGE FORM, 1 COURSE
     Route: 064
  3. EMTRICITABINE [Suspect]
     Active Substance: EMTRICITABINE
     Indication: PRODUCT USED FOR UNKNOWN INDICATION
     Dosage: 1 DOSAGE FORM ,1 COURSE DURING FIRST TRIMESTER
     Route: 064
     Dates: start: 20061128

REACTIONS (2)
  - Hydronephrosis [Unknown]
  - Foetal exposure during pregnancy [Unknown]
